FAERS Safety Report 18541864 (Version 1)
Quarter: 2020Q4

REPORT INFORMATION
  Report Type: Other
  Country: US (occurrence: US)
  Receive Date: 20201124
  Receipt Date: 20201124
  Transmission Date: 20210114
  Serious: No
  Sender: FDA-Public Use
  Company Number: US-LEADIANT BIOSCIENCES INC-2020STPI000087

PATIENT

DRUGS (12)
  1. LASIX [Concomitant]
     Active Substance: FUROSEMIDE
     Dosage: 20 MILLIGRAM
  2. COZAAR [Concomitant]
     Active Substance: LOSARTAN POTASSIUM
     Dosage: 25 MILLIGRAM
  3. CYSTARAN [Suspect]
     Active Substance: CYSTEAMINE HYDROCHLORIDE
     Indication: CORNEAL OPACITY CONGENITAL
     Dosage: 15 MILLILITER DROPS INTO BOTH EYES EVERY WAKING HOUR
     Route: 047
     Dates: start: 20190522
  4. BACTRIM [Concomitant]
     Active Substance: SULFAMETHOXAZOLE\TRIMETHOPRIM
     Dosage: 800 MILLIGRAM
  5. CELLCEPT [Concomitant]
     Active Substance: MYCOPHENOLATE MOFETIL\MYCOPHENOLATE MOFETIL HYDROCHLORIDE
     Dosage: 250 MILLIGRAM
  6. PROCRIT [Concomitant]
     Active Substance: ERYTHROPOIETIN
     Dosage: 4000 UNITS/ML
  7. PREDNISONE. [Concomitant]
     Active Substance: PREDNISONE
     Dosage: 10 MILLIGRAM
  8. SYNTHROID [Concomitant]
     Active Substance: LEVOTHYROXINE SODIUM
     Dosage: 125 MICROGRAM
  9. PRILOSEC [Concomitant]
     Active Substance: OMEPRAZOLE MAGNESIUM
     Dosage: 40 MILLIGRAM
  10. ATENOLOL. [Concomitant]
     Active Substance: ATENOLOL
     Dosage: 100 MILLIGRAM
  11. CYSTAGON [Concomitant]
     Active Substance: CYSTEAMINE BITARTRATE
     Dosage: 150 MILLIGRAM
  12. PROGRAF [Concomitant]
     Active Substance: TACROLIMUS
     Dosage: 1 MILLIGRAM

REACTIONS (1)
  - Ocular hyperaemia [Not Recovered/Not Resolved]
